FAERS Safety Report 11783886 (Version 2)
Quarter: 2015Q4

REPORT INFORMATION
  Report Type: Spontaneous
  Country: US (occurrence: US)
  Receive Date: 20151127
  Receipt Date: 20151202
  Transmission Date: 20160305
  Serious: Yes (Hospitalization)
  Sender: FDA-Public Use
  Company Number: US-ALLERGAN-1524834US

PATIENT
  Age: 42 Year
  Sex: Female
  Weight: 65.76 kg

DRUGS (3)
  1. BOTOX [Suspect]
     Active Substance: ONABOTULINUMTOXINA
     Indication: TREMOR
     Dosage: UNK, SINGLE
     Route: 030
     Dates: start: 20151116, end: 20151116
  2. DEPO-PROVERA [Concomitant]
     Active Substance: MEDROXYPROGESTERONE ACETATE
     Indication: CONTRACEPTION
     Dosage: 4 TIMES A YEAR
  3. BOTOX [Suspect]
     Active Substance: ONABOTULINUMTOXINA
     Indication: TREMOR

REACTIONS (4)
  - Vomiting [Unknown]
  - Urinary retention [Not Recovered/Not Resolved]
  - Off label use [Unknown]
  - Abdominal pain upper [Unknown]

NARRATIVE: CASE EVENT DATE: 201511
